FAERS Safety Report 14687512 (Version 4)
Quarter: 2021Q4

REPORT INFORMATION
  Report Type: Spontaneous
  Country: ES (occurrence: ES)
  Receive Date: 20180328
  Receipt Date: 20211116
  Transmission Date: 20220303
  Serious: Yes (Disabling, Congenital Anomaly, Other)
  Sender: FDA-Public Use
  Company Number: ES-ABBVIE-18S-144-2300455-00

PATIENT
  Sex: Male

DRUGS (1)
  1. VALPROATE SODIUM [Suspect]
     Active Substance: VALPROATE SODIUM
     Indication: Maternal exposure timing unspecified
     Route: 064

REACTIONS (40)
  - Hypotonia neonatal [Unknown]
  - Deafness bilateral [Not Recovered/Not Resolved]
  - Foetal anticonvulsant syndrome [Not Recovered/Not Resolved]
  - Speech disorder developmental [Unknown]
  - Gross motor delay [Unknown]
  - Deformity [Not Recovered/Not Resolved]
  - Motor dysfunction [Not Recovered/Not Resolved]
  - Dysmorphism [Unknown]
  - Autism spectrum disorder [Not Recovered/Not Resolved]
  - Arachnodactyly [Not Recovered/Not Resolved]
  - Clinodactyly [Not Recovered/Not Resolved]
  - Cognitive disorder [Not Recovered/Not Resolved]
  - Cerebral atrophy [Unknown]
  - Speech disorder developmental [Not Recovered/Not Resolved]
  - Skull malformation [Unknown]
  - Prominent epicanthal folds [Unknown]
  - Hypertelorism [Unknown]
  - Cerebral ventricle dilatation [Unknown]
  - Nose deformity [Unknown]
  - Congenital central nervous system anomaly [Unknown]
  - Respiratory distress [Unknown]
  - Arnold-Chiari malformation [Unknown]
  - Cryptorchism [Unknown]
  - Madarosis [Unknown]
  - Abnormal behaviour [Unknown]
  - Deafness neurosensory [Unknown]
  - Deafness neurosensory [Unknown]
  - Disability [Unknown]
  - Premature baby [Not Recovered/Not Resolved]
  - Ear malformation [Not Recovered/Not Resolved]
  - Cardiac murmur [Unknown]
  - Myopathy [Unknown]
  - Dysphagia [Not Recovered/Not Resolved]
  - Lip disorder [Not Recovered/Not Resolved]
  - Attention deficit hyperactivity disorder [Not Recovered/Not Resolved]
  - Fine motor skill dysfunction [Not Recovered/Not Resolved]
  - Gait disturbance [Unknown]
  - Cerebral atrophy [Not Recovered/Not Resolved]
  - Carnitine deficiency [Not Recovered/Not Resolved]
  - Foetal exposure during pregnancy [Unknown]

NARRATIVE: CASE EVENT DATE: 20030101
